APPROVED DRUG PRODUCT: TRAMADOL HYDROCHLORIDE
Active Ingredient: TRAMADOL HYDROCHLORIDE
Strength: 75MG
Dosage Form/Route: TABLET;ORAL
Application: A208708 | Product #004
Applicant: RUBICON RESEARCH LTD
Approved: Apr 4, 2024 | RLD: No | RS: No | Type: RX